FAERS Safety Report 7079905-1 (Version None)
Quarter: 2010Q4

REPORT INFORMATION
  Report Type: 
  Country: None (occurrence: None)
  Receive Date: 20101102
  Receipt Date: 20101025
  Transmission Date: 20110411
  Serious: No
  Sender: FDA-Public Use
  Company Number: US-PFIZER INC-2010121166

PATIENT
  Sex: Female
  Weight: 86.621 kg

DRUGS (11)
  1. DETROL LA [Suspect]
     Indication: HYPERTONIC BLADDER
     Dosage: 4 MG, 1X/DAY
     Route: 048
     Dates: start: 20090324, end: 20100101
  2. CELEBREX [Suspect]
     Indication: PAIN
     Dosage: 200 MG, DAILY
     Route: 048
     Dates: start: 20100901
  3. TOVIAZ [Suspect]
     Indication: HYPERTONIC BLADDER
     Dosage: 4 MG, DAILY
     Route: 048
     Dates: start: 20100909
  4. METFORMIN [Concomitant]
     Indication: DIABETES MELLITUS
     Dosage: 1000 MG, 2X/DAY
     Route: 048
  5. INSULIN [Concomitant]
     Indication: DIABETES MELLITUS
     Dosage: UNK
  6. ACARBOSE [Concomitant]
     Dosage: 50 MG, UNK
  7. ALPHA LIPOIC ACID [Concomitant]
     Dosage: 100 MG, DAILY
     Route: 048
  8. ASPIRIN [Concomitant]
  9. NOVOLIN 70/30 [Concomitant]
     Dosage: 70/30, UNK
  10. PROTONIX [Concomitant]
     Dosage: 20 MG, UNK
  11. VITAMIN D [Concomitant]
     Dosage: 1200 IU, UNK

REACTIONS (2)
  - ABDOMINAL DISCOMFORT [None]
  - HYPERSENSITIVITY [None]
